FAERS Safety Report 4332955-8 (Version None)
Quarter: 2004Q1

REPORT INFORMATION
  Report Type: 
  Country: None (occurrence: None)
  Receive Date: 20040330
  Receipt Date: 20040315
  Transmission Date: 20041129
  Serious: Yes (Other)
  Sender: FDA-Public Use
  Company Number: NSADSS2002015435

PATIENT
  Age: 36 Year
  Sex: Female
  Weight: 127.0072 kg

DRUGS (10)
  1. REMICADE [Suspect]
     Indication: CROHN'S DISEASE
     Dosage: INTRAVENOUS DRIP
     Route: 041
     Dates: start: 20020319
  2. REMICADE [Suspect]
     Indication: CROHN'S DISEASE
     Dosage: INTRAVENOUS DRIP
     Route: 041
     Dates: start: 20020501
  3. ASACOL [Concomitant]
  4. PURITENOL (MERCAPTOPURINE) [Concomitant]
  5. FOLIC ACID [Concomitant]
  6. FLAGYL [Concomitant]
  7. PREDNISONE [Concomitant]
  8. ENTOCORT (BUDESONIDE) [Concomitant]
  9. CIPRO [Concomitant]
  10. DIPHENHYDRAMINE HCL [Concomitant]

REACTIONS (6)
  - ARTHRALGIA [None]
  - DYSPNOEA [None]
  - FATIGUE [None]
  - FLUSHING [None]
  - INFLAMMATORY BOWEL DISEASE [None]
  - INFUSION RELATED REACTION [None]
